FAERS Safety Report 23673466 (Version 1)
Quarter: 2024Q1

REPORT INFORMATION
  Report Type: Report from Study
  Country: US (occurrence: US)
  Receive Date: 20240326
  Receipt Date: 20240326
  Transmission Date: 20240410
  Serious: Yes (Other)
  Sender: FDA-Public Use
  Company Number: US-UCBSA-2023051471

PATIENT
  Age: 50 Year
  Sex: Female
  Weight: 80.74 kg

DRUGS (23)
  1. CERTOLIZUMAB PEGOL [Suspect]
     Active Substance: CERTOLIZUMAB PEGOL
     Indication: Rheumatoid arthritis
     Dosage: 400 MILLIGRAM, EV 2 WEEKS(QOW) 200MGX2 WEEK 0, 2, 4
     Route: 058
     Dates: start: 20231006
  2. CERTOLIZUMAB PEGOL [Suspect]
     Active Substance: CERTOLIZUMAB PEGOL
     Dosage: 200 MILLIGRAM, EV 2 WEEKS(QOW)
     Route: 058
  3. MOTRIN [Concomitant]
     Active Substance: IBUPROFEN
     Indication: Product used for unknown indication
     Dosage: UNK
  4. FOLIC ACID [Concomitant]
     Active Substance: FOLIC ACID
     Indication: Product used for unknown indication
     Dosage: 90 TABLET, 1 DOSAGE FORM, ONCE DAILY (QD), AS DIRECTED
     Route: 048
     Dates: start: 20220131
  5. FOLIC ACID [Concomitant]
     Active Substance: FOLIC ACID
     Dosage: 90 TABLET, 1 DOSAGE FORM, ONCE DAILY (QD), AS DIRECTED
     Route: 048
     Dates: start: 20220216
  6. FOLIC ACID [Concomitant]
     Active Substance: FOLIC ACID
     Dosage: 90 TABLET, 1 DOSAGE FORM, ONCE DAILY (QD), AS DIRECTED
     Route: 048
     Dates: start: 20220325
  7. FOLIC ACID [Concomitant]
     Active Substance: FOLIC ACID
     Dosage: 90 TABLET, 1 DOSAGE FORM, ONCE DAILY (QD), AS DIRECTED
     Route: 048
     Dates: start: 20230928
  8. FOLIC ACID [Concomitant]
     Active Substance: FOLIC ACID
     Dosage: 90 TABLET, 1 DOSAGE FORM, ONCE DAILY (QD), AS DIRECTED
     Route: 048
     Dates: start: 20240220
  9. ATORVASTATIN [Concomitant]
     Active Substance: ATORVASTATIN
     Indication: Product used for unknown indication
     Dosage: 1 DOSAGE FORM, ONCE DAILY (QD), EVERY NIGHT
     Route: 048
  10. METHOTREXATE SODIUM [Concomitant]
     Active Substance: METHOTREXATE SODIUM
     Indication: Product used for unknown indication
     Dosage: 103 TABLET, 8 DOSAGE FORM, WEEKLY (QW), AS DIRECTED
     Route: 048
     Dates: start: 20220325
  11. METHOTREXATE SODIUM [Concomitant]
     Active Substance: METHOTREXATE SODIUM
     Dosage: 103 TABLET, 8 DOSAGE FORM, WEEKLY (QW), AS DIRECTED
     Route: 048
     Dates: start: 20220929
  12. METHOTREXATE SODIUM [Concomitant]
     Active Substance: METHOTREXATE SODIUM
     Dosage: 103 TABLET, 8 DOSAGE FORM, WEEKLY (QW), AS DIRECTED
     Route: 048
     Dates: start: 20230330
  13. METHOTREXATE SODIUM [Concomitant]
     Active Substance: METHOTREXATE SODIUM
     Dosage: 103 TABLET, 8 DOSAGE FORM, WEEKLY (QW), AS DIRECTED
     Route: 048
     Dates: start: 20230928
  14. METHOTREXATE SODIUM [Concomitant]
     Active Substance: METHOTREXATE SODIUM
     Dosage: 103 TABLET, 8 DOSAGE FORM, WEEKLY (QW), AS DIRECTED
     Route: 048
     Dates: start: 20240206
  15. METHOTREXATE SODIUM [Concomitant]
     Active Substance: METHOTREXATE SODIUM
     Dosage: 103 TABLET, 8 DOSAGE FORM, WEEKLY (QW), AS DIRECTED
     Route: 048
     Dates: start: 20240220
  16. IBUPROFEN [Concomitant]
     Active Substance: IBUPROFEN
     Indication: Pain
     Dosage: 60 TABLET, 1 DOSAGE FORM, ONCE DAILY (QD)
     Route: 048
     Dates: start: 20220929
  17. ELIQUIS [Concomitant]
     Active Substance: APIXABAN
     Indication: Product used for unknown indication
     Dosage: 1 DOSAGE FORM, 2X/DAY (BID)
     Route: 048
     Dates: start: 20211026
  18. ELIQUIS [Concomitant]
     Active Substance: APIXABAN
     Dosage: 180 TABLET 3 DOSAGE FORM, 2X/DAY (BID)
     Route: 048
     Dates: start: 20230601
  19. VITAMIN D3 [Concomitant]
     Active Substance: CHOLECALCIFEROL
     Indication: Product used for unknown indication
     Dosage: 2 DOSAGE FORM, ONCE DAILY (QD)
     Route: 048
  20. SHINGRIX [Concomitant]
     Active Substance: RECOMBINANT VARICELLA ZOSTER VIRUS (VZV) GLYCOPROTEIN E
     Indication: Product used for unknown indication
     Dosage: 0.5 MILLILITER SINGLE DOSE,REPEAT BOOSTER IN 2 TO 4 MONTHS
     Route: 030
     Dates: start: 20230928
  21. PREDNISONE [Concomitant]
     Active Substance: PREDNISONE
     Indication: Pain
     Dosage: 60 TABLET, 1 DOSAGE FORM, ONCE DAILY (QD)
     Route: 048
     Dates: start: 20230929
  22. SYNTHROID [Concomitant]
     Active Substance: LEVOTHYROXINE SODIUM
     Indication: Product used for unknown indication
     Dosage: 1 DOSAGE FORM, ONCE DAILY (QD)
     Route: 048
     Dates: start: 20190611
  23. SYNTHROID [Concomitant]
     Active Substance: LEVOTHYROXINE SODIUM
     Dosage: 90 TABLET,1 DOSAGE FORM, ONCE DAILY (QD)
     Route: 048
     Dates: start: 20240110

REACTIONS (5)
  - Rheumatoid arthritis [Not Recovered/Not Resolved]
  - Abdominal discomfort [Recovered/Resolved]
  - Needle issue [Unknown]
  - Insurance issue [Unknown]
  - Therapy interrupted [Unknown]

NARRATIVE: CASE EVENT DATE: 20231001
